FAERS Safety Report 11128286 (Version 1)
Quarter: 2015Q2

REPORT INFORMATION
  Report Type: Spontaneous
  Country: US (occurrence: None)
  Receive Date: 20150520
  Receipt Date: 20150520
  Transmission Date: 20150821
  Serious: Yes (Life-Threatening)
  Sender: FDA-Public Use
  Company Number: None

PATIENT
  Age: 54 Year
  Sex: Female
  Weight: 80.74 kg

DRUGS (4)
  1. OXCARBAZEPINE. [Suspect]
     Active Substance: OXCARBAZEPINE
     Indication: SEIZURE
     Dosage: 2 TWICE DAILY TAKEN BY MOUTH
     Route: 048
     Dates: start: 20150210, end: 20150517
  2. VITAMIN D [Concomitant]
     Active Substance: CHOLECALCIFEROL
  3. MULTI VIT [Concomitant]
  4. LISINIPRIL [Concomitant]

REACTIONS (7)
  - Skin ulcer [None]
  - Scab [None]
  - Fluid retention [None]
  - Anuria [None]
  - Seizure [None]
  - Head discomfort [None]
  - Hearing impaired [None]

NARRATIVE: CASE EVENT DATE: 20150507
